FAERS Safety Report 8844736 (Version 2)
Quarter: 2012Q4

REPORT INFORMATION
  Report Type: 
  Country: US (occurrence: US)
  Receive Date: 20121017
  Receipt Date: 20121207
  Transmission Date: 20130627
  Serious: No
  Sender: FDA-Public Use
  Company Number: US-PFIZER INC-2012255004

PATIENT
  Sex: Female
  Weight: 54.42 kg

DRUGS (1)
  1. ADVIL PM [Suspect]
     Indication: SLEEP DIFFICULT
     Dosage: 400/76 mg by taking two caplets of 200/38 mg, once a day
     Route: 048
     Dates: start: 201209

REACTIONS (1)
  - Drug ineffective [Unknown]
